FAERS Safety Report 25381297 (Version 2)
Quarter: 2025Q2

REPORT INFORMATION
  Report Type: Spontaneous
  Country: IN (occurrence: IN)
  Receive Date: 20250530
  Receipt Date: 20250530
  Transmission Date: 20250716
  Serious: Yes (Hospitalization)
  Sender: BRAINTREE
  Company Number: IN-BRAINTREE LABORATORIES, INC.-2025BTE00337

PATIENT
  Age: 69 Year
  Sex: Female

DRUGS (1)
  1. POLYETHYLENE GLYCOL [Suspect]
     Active Substance: POLYETHYLENE GLYCOL
     Indication: Bowel preparation

REACTIONS (1)
  - Intestinal pseudo-obstruction [Recovered/Resolved]
